FAERS Safety Report 14195178 (Version 3)
Quarter: 2018Q1

REPORT INFORMATION
  Report Type: Spontaneous
  Country: JP (occurrence: JP)
  Receive Date: 20171116
  Receipt Date: 20180209
  Transmission Date: 20180508
  Serious: Yes (Death, Hospitalization, Other)
  Sender: FDA-Public Use
  Company Number: JP-PFIZER INC-2017461683

PATIENT
  Age: 69 Year
  Sex: Male
  Weight: 58.3 kg

DRUGS (8)
  1. ATARAX-P 25MG [Suspect]
     Active Substance: HYDROXYZINE HYDROCHLORIDE
     Indication: PRURITUS
     Dosage: 25 MG, 1X/DAY
     Route: 048
     Dates: start: 20170812, end: 20170906
  2. VEEN D [Concomitant]
     Active Substance: CALCIUM CHLORIDE\DEXTROSE\POTASSIUM CHLORIDE\SODIUM ACETATE\SODIUM CHLORIDE
     Indication: FLUID REPLACEMENT
     Dosage: 1 DF, 1X/DAY
     Route: 041
     Dates: start: 20170907, end: 20170913
  3. TALION [Suspect]
     Active Substance: BEPOTASTINE
     Indication: PRURITUS
     Dosage: 10 MG, 2X/DAY
     Route: 048
     Dates: start: 20170812, end: 20170906
  4. SOLDEM 3AG [Concomitant]
     Indication: FLUID REPLACEMENT
     Dosage: 1 DF, 2X/DAY
     Route: 041
     Dates: start: 20170906, end: 20170911
  5. LOXOPROFEN SODIUM [Concomitant]
     Active Substance: LOXOPROFEN SODIUM
     Indication: PYREXIA
     Dosage: 60 MG, UNK
     Route: 048
     Dates: start: 20170907
  6. TALION [Suspect]
     Active Substance: BEPOTASTINE
     Dosage: 10 MG, 2X/DAY
     Route: 048
     Dates: start: 20170908, end: 20170909
  7. ATARAX-P 25MG [Suspect]
     Active Substance: HYDROXYZINE HYDROCHLORIDE
     Dosage: 25 MG, 1X/DAY
     Route: 048
     Dates: start: 20170908, end: 20170909
  8. REBAMIPIDE [Concomitant]
     Active Substance: REBAMIPIDE
     Indication: PYREXIA
     Dosage: 100 MG, UNK
     Route: 048
     Dates: start: 20170907

REACTIONS (5)
  - Hepatic function abnormal [Fatal]
  - Cardio-respiratory arrest [Recovered/Resolved]
  - Condition aggravated [Fatal]
  - Platelet count decreased [Unknown]
  - Intra-abdominal haemorrhage [Fatal]

NARRATIVE: CASE EVENT DATE: 20170904
